FAERS Safety Report 7392194-3 (Version None)
Quarter: 2011Q2

REPORT INFORMATION
  Report Type: 
  Country: None (occurrence: None)
  Receive Date: 20110404
  Receipt Date: 20110328
  Transmission Date: 20111010
  Serious: Yes (Other)
  Sender: FDA-Public Use
  Company Number: B0709666A

PATIENT
  Sex: Male

DRUGS (2)
  1. REQUIP [Suspect]
     Indication: PARKINSON'S DISEASE
     Route: 065
     Dates: start: 20030101, end: 20050101
  2. STALEVO 100 [Concomitant]
     Indication: PARKINSON'S DISEASE
     Route: 065
     Dates: start: 20030101, end: 20050101

REACTIONS (6)
  - ABNORMAL BEHAVIOUR [None]
  - SOCIAL AVOIDANT BEHAVIOUR [None]
  - PATHOLOGICAL GAMBLING [None]
  - HYPERSEXUALITY [None]
  - DEPENDENCE [None]
  - IMPULSE-CONTROL DISORDER [None]
